FAERS Safety Report 5105249-0 (Version None)
Quarter: 2006Q3

REPORT INFORMATION
  Report Type: 
  Country: None (occurrence: None)
  Receive Date: 20060911
  Receipt Date: 20060821
  Transmission Date: 20061208
  Serious: Yes (Hospitalization, Other)
  Sender: FDA-Public Use
  Company Number: US200608000111

PATIENT
  Age: 61 Year
  Sex: Female
  Weight: 71.7 kg

DRUGS (5)
  1. FORTEO [Suspect]
     Indication: OSTEOPOROSIS
     Dosage: 20 UG, DAILY (1/D),
     Dates: start: 20040401, end: 20060401
  2. CRESTOR [Concomitant]
  3. AVAPRO [Concomitant]
  4. NEXIUM/UNK (ESOMEPRAZOLE) [Concomitant]
  5. FORTEO [Concomitant]

REACTIONS (5)
  - ANAEMIA [None]
  - BONE DENSITY DECREASED [None]
  - COLON CANCER STAGE I [None]
  - CONDITION AGGRAVATED [None]
  - FATIGUE [None]
